FAERS Safety Report 24063594 (Version 1)
Quarter: 2024Q3

REPORT INFORMATION
  Report Type: Spontaneous
  Country: CN (occurrence: CN)
  Receive Date: 20240709
  Receipt Date: 20240709
  Transmission Date: 20241017
  Serious: Yes (Life-Threatening, Hospitalization)
  Sender: BOEHRINGER INGELHEIM
  Company Number: CN-BoehringerIngelheim-2024-BI-038352

PATIENT
  Age: 88 Year
  Sex: Female
  Weight: 42.0 kg

DRUGS (2)
  1. LINAGLIPTIN [Suspect]
     Active Substance: LINAGLIPTIN
     Indication: Diabetes mellitus
     Route: 048
     Dates: start: 20230824, end: 20240625
  2. REPAGLINIDE [Suspect]
     Active Substance: REPAGLINIDE
     Indication: Diabetes mellitus
     Route: 048
     Dates: start: 20230824, end: 20240625

REACTIONS (3)
  - Hypoglycaemia [Recovering/Resolving]
  - Confusional state [Recovering/Resolving]
  - Product use issue [Unknown]

NARRATIVE: CASE EVENT DATE: 20240625
